FAERS Safety Report 4801095-3 (Version None)
Quarter: 2005Q4

REPORT INFORMATION
  Report Type: 
  Country: None (occurrence: None)
  Receive Date: 20051011
  Receipt Date: 20050926
  Transmission Date: 20060501
  Serious: Yes (Other)
  Sender: FDA-Public Use
  Company Number: 2005-00817FE

PATIENT
  Age: 36 Year
  Sex: 0

DRUGS (5)
  1. SOMATROPIN [Suspect]
     Route: 058
  2. ANABOLIC STEROIDS [Concomitant]
  3. HUMAN GROWTH HORMONE, RECOMBINANT [Concomitant]
  4. EPHEDRINE [Concomitant]
  5. LEVOTHYROXINE [Concomitant]

REACTIONS (4)
  - CARDIAC DISORDER [None]
  - CARDIOMYOPATHY [None]
  - EJECTION FRACTION DECREASED [None]
  - VENTRICULAR HYPERTROPHY [None]
